FAERS Safety Report 5704471-X (Version None)
Quarter: 2008Q2

REPORT INFORMATION
  Report Type: 
  Country: None (occurrence: None)
  Receive Date: 20080414
  Receipt Date: 20080407
  Transmission Date: 20081010
  Serious: Yes (Disabling)
  Sender: FDA-Public Use
  Company Number: US-MERCK-0804USA01696

PATIENT
  Age: 42 Year
  Sex: Female

DRUGS (3)
  1. SINGULAIR [Suspect]
     Indication: ASTHMA
     Route: 048
  2. SINGULAIR [Suspect]
     Route: 048
     Dates: start: 20080201, end: 20080301
  3. [THERAPY UNSPECIFIED] [Concomitant]
     Indication: ASTHMA
     Route: 065

REACTIONS (2)
  - DEPRESSION [None]
  - MOOD SWINGS [None]
